FAERS Safety Report 9630285 (Version 1)
Quarter: 2013Q4

REPORT INFORMATION
  Report Type: Spontaneous
  Country: BR (occurrence: BR)
  Receive Date: 20131017
  Receipt Date: 20131017
  Transmission Date: 20140711
  Serious: Yes (Other)
  Sender: FDA-Public Use
  Company Number: BR-PFIZER INC-2013293492

PATIENT
  Age: 82 Year
  Sex: Female
  Weight: 90 kg

DRUGS (8)
  1. FRONTAL XR [Suspect]
     Dosage: 1 MG DAILY
     Route: 048
     Dates: start: 20080802, end: 201305
  2. FOLIC ACID [Concomitant]
     Indication: ANAEMIA
     Dosage: 1 TABLET DAILY
  3. ASS [Concomitant]
     Indication: ANTICOAGULANT THERAPY
     Dosage: 1 TABLET DAILY
     Dates: start: 1993
  4. IRON [Concomitant]
     Indication: ANAEMIA
     Dosage: 2 TABLETS A DAY
  5. GLUCOVANCE [Concomitant]
     Indication: DIABETES MELLITUS
     Dosage: 2 TABLETS A DAY
     Dates: start: 2008
  6. LIOFTAL [Concomitant]
     Indication: ANXIETY
     Dosage: 1 TABLET A DAY
     Dates: start: 2008
  7. OMEPRAZOL [Concomitant]
     Indication: PROPHYLAXIS
     Dosage: 2 TABLETS A DAY
     Dates: start: 1998
  8. CLEBON [Concomitant]
     Indication: ANGIOPATHY
     Dosage: 1 TABLET DAILY
     Dates: start: 2012

REACTIONS (2)
  - Cardiac disorder [Unknown]
  - Infection [Unknown]
